FAERS Safety Report 4735668-3 (Version None)
Quarter: 2005Q3

REPORT INFORMATION
  Report Type: 
  Country: None (occurrence: None)
  Receive Date: 20050804
  Receipt Date: 20050722
  Transmission Date: 20060218
  Serious: Yes (Hospitalization, Other)
  Sender: FDA-Public Use
  Company Number: 2004112740

PATIENT
  Age: 77 Year
  Sex: Female

DRUGS (1)
  1. DETROL LA [Suspect]
     Indication: MICTURITION URGENCY
     Dosage: 4  MG (4 MG, 1 IN 1 D), ORAL
     Route: 048
     Dates: start: 20040811

REACTIONS (10)
  - COLPORRHAPHY [None]
  - CORONARY ARTERY SURGERY [None]
  - CYSTOCELE [None]
  - GALLBLADDER OPERATION [None]
  - HERNIA REPAIR [None]
  - HYSTERECTOMY [None]
  - SALPINGO-OOPHORECTOMY [None]
  - URETHRAL OPERATION [None]
  - VASCULAR OPERATION [None]
  - WOUND [None]
